FAERS Safety Report 6619813-0 (Version None)
Quarter: 2010Q1

REPORT INFORMATION
  Report Type: 
  Country: None (occurrence: None)
  Receive Date: 20100309
  Receipt Date: 20100305
  Transmission Date: 20100710
  Serious: Yes (Death)
  Sender: FDA-Public Use
  Company Number: PHHY2010CA11588

PATIENT
  Sex: Male

DRUGS (3)
  1. CLOZARIL [Suspect]
     Indication: SCHIZOPHRENIA
     Dosage: 250 MG (AM AND HS)
     Route: 048
     Dates: start: 19971201
  2. KEMADRIN [Concomitant]
     Dosage: 10 MG QAM AND QHS
  3. RIVOTRIL [Concomitant]
     Dosage: 0.5 MG, BID

REACTIONS (1)
  - MYOCARDIAL INFARCTION [None]
